FAERS Safety Report 17687704 (Version 1)
Quarter: 2020Q2

REPORT INFORMATION
  Report Type: Report from Study
  Country: CN (occurrence: CN)
  Receive Date: 20200421
  Receipt Date: 20200421
  Transmission Date: 20200714
  Serious: Yes (Other)
  Sender: FDA-Public Use
  Company Number: CN-SUN PHARMACEUTICAL INDUSTRIES LTD-2020R1-244531

PATIENT
  Age: 16 Week
  Sex: Female

DRUGS (1)
  1. OCTREOTIDE. [Suspect]
     Active Substance: OCTREOTIDE
     Indication: CONGENITAL HYPERINSULINAEMIC HYPOGLYCAEMIA
     Dosage: 11.5 MICROGRAM/KILOGRAM, DAILY (DURATION: 3 MONTHS)
     Route: 065

REACTIONS (3)
  - Hypoglycaemia [Unknown]
  - Off label use [Unknown]
  - Liver function test increased [Recovered/Resolved]
